FAERS Safety Report 21858908 (Version 1)
Quarter: 2023Q1

REPORT INFORMATION
  Report Type: Report from Study
  Country: GB (occurrence: GB)
  Receive Date: 20230113
  Receipt Date: 20230113
  Transmission Date: 20230418
  Serious: Yes (Hospitalization)
  Sender: FDA-Public Use
  Company Number: GB-002147023-NVSC2022GB281301

PATIENT
  Sex: Female

DRUGS (2)
  1. COSENTYX [Suspect]
     Active Substance: SECUKINUMAB
     Indication: Psoriatic arthropathy
     Dosage: 150 MG, QMO
     Route: 058
  2. COSENTYX [Suspect]
     Active Substance: SECUKINUMAB
     Dosage: UNK (24 DEC)
     Route: 065

REACTIONS (6)
  - Pneumothorax [Unknown]
  - Pneumonia [Unknown]
  - Lower respiratory tract infection [Unknown]
  - Swelling [Unknown]
  - Pain [Unknown]
  - Joint swelling [Unknown]
